FAERS Safety Report 9803439 (Version 2)
Quarter: 2014Q2

REPORT INFORMATION
  Report Type: Spontaneous
  Country: US (occurrence: US)
  Receive Date: 20140108
  Receipt Date: 20140422
  Transmission Date: 20141212
  Serious: Yes (Hospitalization)
  Sender: FDA-Public Use
  Company Number: US-BAYER-2014-002035

PATIENT
  Age: 30 Year
  Sex: Female
  Weight: 90.25 kg

DRUGS (3)
  1. MIRENA [Suspect]
     Dosage: 20 MCG/24HR, CONT
     Route: 015
     Dates: start: 20081008, end: 20120815
  2. VALIUM [Concomitant]
  3. IBUPROFEN [Concomitant]

REACTIONS (9)
  - Device dislocation [None]
  - Procedural pain [None]
  - Injury [None]
  - Pain [None]
  - Emotional distress [None]
  - Weight increased [None]
  - Device dislocation [None]
  - Device difficult to use [None]
  - Scar [None]
